FAERS Safety Report 7342051-3 (Version None)
Quarter: 2011Q1

REPORT INFORMATION
  Report Type: 
  Country: None (occurrence: None)
  Receive Date: 20110309
  Receipt Date: 20110228
  Transmission Date: 20110831
  Serious: Yes (Hospitalization)
  Sender: FDA-Public Use
  Company Number: US-ASTRAZENECA-2011SE11010

PATIENT
  Age: 74 Year
  Sex: Female

DRUGS (14)
  1. APIXABAN [Suspect]
     Indication: THROMBOSIS PROPHYLAXIS
     Route: 048
     Dates: start: 20100810
  2. PRILOSEC [Concomitant]
  3. CYMBALTA [Concomitant]
     Dates: start: 20070101
  4. MOM [Concomitant]
     Dates: start: 20070101
  5. ALBUTEROL [Concomitant]
     Dates: start: 20040101
  6. FLEXERIL [Concomitant]
     Dates: start: 20080101
  7. MOBIC [Concomitant]
  8. BENZYL ALCOHOL [Concomitant]
  9. ROSUVASTATIN [Suspect]
     Indication: HYPERLIPIDAEMIA
     Route: 048
     Dates: start: 20101017
  10. METOPROLOL [Concomitant]
     Dates: start: 19880101
  11. LEVOXYL [Concomitant]
  12. FLECAINIDE ACETATE [Concomitant]
     Dates: start: 19880101
  13. TRAMADOL HCL [Concomitant]
     Dates: start: 20070101
  14. SODIUM CHLORIDE [Concomitant]

REACTIONS (1)
  - CHEST PAIN [None]
